FAERS Safety Report 7248735-X (Version None)
Quarter: 2011Q1

REPORT INFORMATION
  Report Type: 
  Country: None (occurrence: None)
  Receive Date: 20110121
  Receipt Date: 20110121
  Transmission Date: 20110831
  Serious: Yes (Other)
  Sender: FDA-Public Use
  Company Number: None

PATIENT
  Sex: Male
  Weight: 121.564 kg

DRUGS (1)
  1. TAMSULOSIN HCL [Suspect]
     Indication: CEREBROVASCULAR ACCIDENT
     Dosage: 1 QD

REACTIONS (2)
  - POLLAKIURIA [None]
  - PRODUCT SUBSTITUTION ISSUE [None]
